FAERS Safety Report 15729185 (Version 1)
Quarter: 2018Q4

REPORT INFORMATION
  Report Type: Spontaneous
  Country: AU (occurrence: AU)
  Receive Date: 20181217
  Receipt Date: 20181217
  Transmission Date: 20190205
  Serious: Yes (Hospitalization, Other)
  Sender: FDA-Public Use
  Company Number: AU-APOTEX-2018AP027267

PATIENT
  Age: 55 Year
  Sex: Female

DRUGS (1)
  1. METFORMIN [Suspect]
     Active Substance: METFORMIN HYDROCHLORIDE
     Indication: PRODUCT USED FOR UNKNOWN INDICATION
     Dosage: 132 G, UNK
     Route: 048

REACTIONS (4)
  - Overdose [Unknown]
  - Shock [Recovering/Resolving]
  - Hyperlactacidaemia [Recovering/Resolving]
  - Metabolic acidosis [Recovering/Resolving]
